FAERS Safety Report 16809356 (Version 2)
Quarter: 2019Q3

REPORT INFORMATION
  Report Type: Report from Study
  Country: DO (occurrence: DO)
  Receive Date: 20190916
  Receipt Date: 20190923
  Transmission Date: 20191005
  Serious: Yes (Life-Threatening, Other)
  Sender: FDA-Public Use
  Company Number: PHHY2019DO214284

PATIENT
  Age: 48 Year
  Sex: Female

DRUGS (1)
  1. VYMADA [Suspect]
     Active Substance: SACUBITRIL\VALSARTAN
     Indication: PRODUCT USED FOR UNKNOWN INDICATION
     Dosage: 50 MG (24MG SACUBITRIL/ 26MG VALSARTAN), UNK
     Route: 065

REACTIONS (3)
  - Gait inability [Unknown]
  - Infarction [Unknown]
  - Malaise [Unknown]
